FAERS Safety Report 8770314 (Version 1)
Quarter: 2012Q4

REPORT INFORMATION
  Report Type: 
  Country: KG (occurrence: KG)
  Receive Date: 20120904
  Receipt Date: 20120904
  Transmission Date: 20130627
  Serious: Yes (Death)
  Sender: FDA-Public Use
  Company Number: PHHY2011KG117135

PATIENT
  Sex: Male

DRUGS (1)
  1. GLIVEC [Suspect]
     Dosage: UNK
     Dates: start: 20100621

REACTIONS (1)
  - Cerebrovascular accident [Fatal]
